FAERS Safety Report 17359088 (Version 1)
Quarter: 2020Q1

REPORT INFORMATION
  Report Type: Report from Study
  Country: None (occurrence: CA)
  Receive Date: 20200202
  Receipt Date: 20200202
  Transmission Date: 20200409
  Serious: Yes (Other)
  Sender: FDA-Public Use
  Company Number: CA-ABBVIE-20K-028-3257403-00

PATIENT
  Age: 28 Year
  Sex: Male

DRUGS (1)
  1. HUMIRA [Suspect]
     Active Substance: ADALIMUMAB
     Indication: CROHN^S DISEASE
     Route: 058
     Dates: start: 20120509

REACTIONS (3)
  - Malaise [Recovering/Resolving]
  - Flatulence [Recovering/Resolving]
  - Gastrointestinal obstruction [Recovering/Resolving]

NARRATIVE: CASE EVENT DATE: 20200128
